FAERS Safety Report 4691683-X (Version None)
Quarter: 2005Q2

REPORT INFORMATION
  Report Type: 
  Country: None (occurrence: None)
  Receive Date: 20050616
  Receipt Date: 20050602
  Transmission Date: 20051028
  Serious: Yes (Disabling)
  Sender: FDA-Public Use
  Company Number: GB-JNJFOC-20050603343

PATIENT
  Sex: Female

DRUGS (2)
  1. ZYDOL [Suspect]
     Route: 049
  2. BENDROFLUAZIDE [Concomitant]
     Route: 049

REACTIONS (3)
  - HYPOAESTHESIA [None]
  - MUSCLE TIGHTNESS [None]
  - MYALGIA [None]
